FAERS Safety Report 5057488-5 (Version None)
Quarter: 2006Q3

REPORT INFORMATION
  Report Type: 
  Country: None (occurrence: None)
  Receive Date: 20060721
  Receipt Date: 20051024
  Transmission Date: 20061208
  Serious: No
  Sender: FDA-Public Use
  Company Number: US-GLAXOSMITHKLINE-A0579403A

PATIENT
  Age: 57 Year

DRUGS (5)
  1. AVANDIA [Suspect]
     Dosage: 4MG PER DAY
     Route: 048
     Dates: start: 20051010
  2. LANTUS [Concomitant]
  3. NEURONTIN [Concomitant]
  4. LITHIUM CARBONATE [Concomitant]
  5. CLONAZEPAM [Concomitant]

REACTIONS (1)
  - BLOOD GLUCOSE INCREASED [None]
